FAERS Safety Report 26112272 (Version 1)
Quarter: 2025Q4

REPORT INFORMATION
  Report Type: Spontaneous
  Country: US (occurrence: None)
  Receive Date: 20251202
  Receipt Date: 20251202
  Transmission Date: 20260118
  Serious: Yes (Disabling)
  Sender: FDA-CTU
  Company Number: None

PATIENT
  Age: 9 Year
  Sex: Female
  Weight: 45.9 kg

DRUGS (1)
  1. LUPRON DEPOT [Suspect]
     Active Substance: LEUPROLIDE ACETATE
     Indication: Precocious puberty
     Dosage: OTHER QUANTITY : 45 INJECTION(S)?OTHER FREQUENCY : 6 MONTH?
     Route: 042
     Dates: start: 20250805

REACTIONS (7)
  - Insomnia [None]
  - Oropharyngeal pain [None]
  - Nausea [None]
  - Irritability [None]
  - Abdominal pain upper [None]
  - Central obesity [None]
  - Dyskinesia [None]

NARRATIVE: CASE EVENT DATE: 20251010
